FAERS Safety Report 21674162 (Version 1)
Quarter: 2022Q4

REPORT INFORMATION
  Report Type: Spontaneous
  Country: ES (occurrence: ES)
  Receive Date: 20221202
  Receipt Date: 20221202
  Transmission Date: 20230112
  Serious: No
  Sender: FDA-Public Use
  Company Number: ES-ELI_LILLY_AND_COMPANY-ES202211013880

PATIENT
  Age: 50 Year
  Sex: Male

DRUGS (5)
  1. TADALAFIL [Suspect]
     Active Substance: TADALAFIL
     Indication: Erectile dysfunction
     Dosage: UNK, UNKNOWN
     Route: 048
  2. SILDENAFIL CITRATE [Suspect]
     Active Substance: SILDENAFIL CITRATE
     Indication: Erectile dysfunction
     Dosage: UNK, UNKNOWN
     Route: 065
  3. SILDENAFIL CITRATE [Suspect]
     Active Substance: SILDENAFIL CITRATE
     Dosage: 800 MG, DAILY
     Route: 048
  4. VARDENAFIL HYDROCHLORIDE [Suspect]
     Active Substance: VARDENAFIL HYDROCHLORIDE
     Indication: Erectile dysfunction
     Dosage: UNK, UNKNOWN
     Route: 065
  5. VARDENAFIL HYDROCHLORIDE [Suspect]
     Active Substance: VARDENAFIL HYDROCHLORIDE
     Dosage: 600 MG, DAILY
     Route: 048

REACTIONS (3)
  - Macular thickening [Unknown]
  - Vision blurred [Unknown]
  - Overdose [Unknown]
